FAERS Safety Report 10021865 (Version 1)
Quarter: 2014Q1

REPORT INFORMATION
  Report Type: Spontaneous
  Country: US (occurrence: US)
  Receive Date: 20140319
  Receipt Date: 20140319
  Transmission Date: 20141002
  Serious: No
  Sender: FDA-Public Use
  Company Number: US-ASTRAZENECA-2014SE05955

PATIENT
  Age: 81 Year
  Sex: Female
  Weight: 45.4 kg

DRUGS (15)
  1. SYMBICORT [Suspect]
     Indication: ASTHMA
     Dosage: 160 MCG, TWO TIMES A DAY
     Route: 055
     Dates: start: 20140123
  2. METOPROLOL SUCCINATE [Suspect]
     Indication: HYPERTENSION
     Route: 048
  3. FERROUS SULPHATE [Suspect]
     Indication: ANAEMIA
     Route: 065
     Dates: start: 2013
  4. ANALAPRIL [Concomitant]
     Indication: HYPERTENSION
     Route: 048
  5. LEVOTHYROXINE [Concomitant]
     Indication: HYPOTHYROIDISM
     Route: 048
  6. LANTUS INSULIN [Concomitant]
     Dosage: 8 UNITS, DAILY
     Route: 058
  7. KETOROLAC [Concomitant]
     Indication: CATARACT
     Dosage: 1 DROP, DAILY
     Route: 050
  8. MUCINEX [Concomitant]
     Indication: COUGH
     Route: 048
  9. FLUTICASONE [Concomitant]
     Indication: RHINORRHOEA
     Route: 045
  10. CENTRUM SILVER [Concomitant]
     Indication: SUPPLEMENTATION THERAPY
     Dosage: DAILY
     Route: 048
  11. METFORMIN [Concomitant]
     Route: 048
  12. SIMVASTATIN [Concomitant]
     Indication: BLOOD CHOLESTEROL
     Route: 048
  13. PANTOPRAZOLE [Concomitant]
     Indication: ULCER
     Route: 048
  14. FAMODITINE [Concomitant]
     Route: 048
  15. XYLODERM [Concomitant]

REACTIONS (5)
  - Productive cough [Unknown]
  - Rhinorrhoea [Unknown]
  - Abdominal pain upper [Unknown]
  - Nasopharyngitis [Unknown]
  - Faeces discoloured [Unknown]
